FAERS Safety Report 8443895-7 (Version None)
Quarter: 2012Q2

REPORT INFORMATION
  Report Type: 
  Country: None (occurrence: None)
  Receive Date: 20120618
  Receipt Date: 20120608
  Transmission Date: 20120825
  Serious: Yes (Hospitalization)
  Sender: FDA-Public Use
  Company Number: US-BAYER-2012-001276

PATIENT
  Age: 16 Year
  Sex: Female
  Weight: 60.771 kg

DRUGS (12)
  1. YAZ [Suspect]
     Indication: CONTRACEPTION
     Dosage: UNK
     Dates: start: 20090217, end: 20091217
  2. AMOX-CLAV [Concomitant]
     Dosage: UNK
     Dates: start: 20091201
  3. BIAXIN [Concomitant]
     Dosage: UNK
     Dates: start: 20091201
  4. MEDROL [Concomitant]
     Dosage: UNK
     Dates: start: 20091101
  5. IBUPROFEN [Concomitant]
     Dosage: UNK
     Dates: start: 20091201
  6. BENADRYL [Concomitant]
     Dosage: UNK
     Dates: start: 20091101
  7. KENALOG [Concomitant]
     Dosage: UNK
     Dates: start: 20091101
  8. YASMIN [Suspect]
  9. YAZ [Suspect]
     Indication: ACNE
  10. NASONEX [Concomitant]
     Dosage: UNK
     Dates: start: 20091201
  11. ALLEGRA-D 12 HOUR [Concomitant]
     Dosage: UNK
     Dates: start: 20091201
  12. UNCODEABLE ^UNCLASSIFIABLE^ [Concomitant]
     Dosage: UNK
     Dates: start: 20091201

REACTIONS (12)
  - PAIN [None]
  - DEPRESSION [None]
  - EMOTIONAL DISTRESS [None]
  - MUSCLE STRAIN [None]
  - INJURY [None]
  - PAIN IN EXTREMITY [None]
  - FEELING HOT [None]
  - DEEP VEIN THROMBOSIS [None]
  - SENSATION OF HEAVINESS [None]
  - MENTAL DISORDER [None]
  - SKIN DISCOLOURATION [None]
  - OEDEMA PERIPHERAL [None]
